FAERS Safety Report 7815737-1 (Version None)
Quarter: 2011Q4

REPORT INFORMATION
  Report Type: 
  Country: None (occurrence: None)
  Receive Date: 20111014
  Receipt Date: 20111012
  Transmission Date: 20120403
  Serious: Yes (Other)
  Sender: FDA-Public Use
  Company Number: US-ABBOTT-10P-163-0675003-00

PATIENT
  Sex: Female
  Weight: 71.278 kg

DRUGS (5)
  1. SYNTHROID [Concomitant]
     Indication: HYPOTHYROIDISM
  2. MINOCYCLINE HCL [Concomitant]
     Indication: RASH
     Route: 048
  3. HUMIRA [Suspect]
     Indication: PSORIASIS
     Route: 058
     Dates: start: 20091201, end: 20100910
  4. SYNTHROID [Concomitant]
     Dosage: DAILY
     Route: 048
     Dates: start: 20000101
  5. VALTREX [Concomitant]
     Indication: GENITAL HERPES

REACTIONS (2)
  - DIZZINESS [None]
  - BLIGHTED OVUM [None]
